FAERS Safety Report 23580341 (Version 2)
Quarter: 2024Q2

REPORT INFORMATION
  Report Type: Report from Study
  Country: BR (occurrence: BR)
  Receive Date: 20240229
  Receipt Date: 20240613
  Transmission Date: 20240716
  Serious: Yes (Disabling, Other)
  Sender: FDA-Public Use
  Company Number: BR-Merck Healthcare KGaA-9312739

PATIENT
  Sex: Female

DRUGS (1)
  1. INTERFERON BETA-1A [Suspect]
     Active Substance: INTERFERON BETA-1A
     Indication: Multiple sclerosis
     Route: 058
     Dates: start: 20210714

REACTIONS (4)
  - Blindness unilateral [Recovering/Resolving]
  - Uveitis [Unknown]
  - Photopsia [Unknown]
  - Multiple sclerosis relapse [Recovered/Resolved]
